FAERS Safety Report 14525723 (Version 1)
Quarter: 2018Q1

REPORT INFORMATION
  Report Type: Spontaneous
  Country: CN (occurrence: CN)
  Receive Date: 20180213
  Receipt Date: 20180213
  Transmission Date: 20180509
  Serious: Yes (Hospitalization)
  Sender: FDA-Public Use
  Company Number: CN-ELI_LILLY_AND_COMPANY-CN201802003647

PATIENT
  Age: 68 Year
  Sex: Male
  Weight: 65 kg

DRUGS (4)
  1. HUMULIN R [Suspect]
     Active Substance: INSULIN HUMAN
     Dosage: 16 U, EACH EVENING
     Route: 058
     Dates: start: 201711, end: 20180205
  2. HUMULIN R [Suspect]
     Active Substance: INSULIN HUMAN
     Dosage: 8 U, DAILY
     Route: 058
     Dates: start: 201711, end: 20180205
  3. HUMULIN R [Suspect]
     Active Substance: INSULIN HUMAN
     Indication: TYPE 2 DIABETES MELLITUS
     Dosage: 16 U, EACH MORNING
     Route: 058
     Dates: start: 201711, end: 20180205
  4. TELMISARTAN. [Concomitant]
     Active Substance: TELMISARTAN
     Indication: DIABETES MELLITUS
     Dosage: 2 DF, BID
     Route: 048
     Dates: start: 2017

REACTIONS (1)
  - Blood glucose abnormal [Unknown]
